FAERS Safety Report 9728278 (Version 1)
Quarter: 2013Q4

REPORT INFORMATION
  Report Type: Spontaneous
  Country: US (occurrence: US)
  Receive Date: 20131204
  Receipt Date: 20131204
  Transmission Date: 20140711
  Serious: Yes (Other)
  Sender: FDA-Public Use
  Company Number: US-SA-2013SA125481

PATIENT
  Age: 78 Year
  Sex: Female

DRUGS (2)
  1. LANTUS SOLOSTAR [Suspect]
     Indication: TYPE 2 DIABETES MELLITUS
     Dosage: TAKEN FROM: 2 YEARS. DOSE:35 UNIT(S)
     Route: 051
  2. SOLOSTAR [Concomitant]
     Dosage: TAKEN FROM: 2 YEARS.

REACTIONS (2)
  - Blindness [Unknown]
  - Visual acuity reduced [Unknown]
